FAERS Safety Report 7974456-1 (Version None)
Quarter: 2011Q4

REPORT INFORMATION
  Report Type: 
  Country: None (occurrence: None)
  Receive Date: 20111213
  Receipt Date: 20111208
  Transmission Date: 20120403
  Serious: Yes (Hospitalization)
  Sender: FDA-Public Use
  Company Number: DE-ABBOTT-11P-062-0879088-00

PATIENT
  Sex: Female

DRUGS (3)
  1. ETORICOXIB [Concomitant]
     Indication: RHEUMATOID ARTHRITIS
  2. HUMIRA [Suspect]
     Indication: RHEUMATOID ARTHRITIS
     Dosage: EOW
     Route: 058
     Dates: start: 20110809
  3. PREDNISOLONE [Concomitant]
     Indication: RHEUMATOID ARTHRITIS

REACTIONS (1)
  - BREAST CANCER [None]
